FAERS Safety Report 10313656 (Version 1)
Quarter: 2014Q3

REPORT INFORMATION
  Report Type: Spontaneous
  Country: ES (occurrence: ES)
  Receive Date: 20140718
  Receipt Date: 20140718
  Transmission Date: 20150326
  Serious: Yes (Hospitalization, Other)
  Sender: FDA-Public Use
  Company Number: ES-TEVA-493216ISR

PATIENT
  Age: 46 Year
  Sex: Female

DRUGS (7)
  1. VALERIAN [Concomitant]
     Active Substance: VALERIAN
     Dosage: 4 DOSAGE FORMS DAILY;
  2. NATYSAL [Concomitant]
     Dosage: 2 DOSAGE FORMS DAILY; 2 CAPSULES EACH NIGHT
  3. VITAMINS [Concomitant]
     Active Substance: VITAMINS
  4. PARACETAMOL [Concomitant]
     Active Substance: ACETAMINOPHEN
  5. EVRA PARCHE TRANSDERMICO [Concomitant]
     Indication: CONTRACEPTION
     Route: 062
  6. ORFIDALS [Concomitant]
  7. FENTANILO MATRIX RATIOPHARM 50 MCG [Suspect]
     Active Substance: FENTANYL
     Indication: PRODUCT USED FOR UNKNOWN INDICATION
     Route: 062
     Dates: start: 2013, end: 201407

REACTIONS (3)
  - Overdose [None]
  - Drug interaction [Not Recovered/Not Resolved]
  - Psychotic disorder [Not Recovered/Not Resolved]

NARRATIVE: CASE EVENT DATE: 201407
